FAERS Safety Report 11455754 (Version 1)
Quarter: 2015Q3

REPORT INFORMATION
  Report Type: Spontaneous
  Country: JP (occurrence: JP)
  Receive Date: 20150903
  Receipt Date: 20150903
  Transmission Date: 20151125
  Serious: Yes (Death, Other)
  Sender: FDA-Public Use
  Company Number: JP-CELGENE-JPN-2015086451

PATIENT
  Age: 55 Year
  Sex: Male

DRUGS (3)
  1. LENADEX [Suspect]
     Active Substance: DEXAMETHASONE ACETATE
     Indication: PLASMA CELL MYELOMA RECURRENT
     Route: 065
  2. REVLIMID [Suspect]
     Active Substance: LENALIDOMIDE
     Indication: PLASMA CELL MYELOMA RECURRENT
     Route: 048
  3. BORTEZOMIB [Concomitant]
     Active Substance: BORTEZOMIB
     Route: 065

REACTIONS (2)
  - Blood creatinine increased [Recovered/Resolved]
  - Plasma cell myeloma [Fatal]

NARRATIVE: CASE EVENT DATE: 201306
